FAERS Safety Report 17458164 (Version 1)
Quarter: 2020Q1

REPORT INFORMATION
  Report Type: Spontaneous
  Country: FR (occurrence: FR)
  Receive Date: 20200225
  Receipt Date: 20200225
  Transmission Date: 20200409
  Serious: Yes (Hospitalization)
  Sender: FDA-Public Use
  Company Number: FR-MYLANLABS-2020M1019728

PATIENT
  Age: 79 Year
  Sex: Male

DRUGS (3)
  1. TINZAPARINE SODIQUE [Concomitant]
     Active Substance: TINZAPARIN SODIUM
     Route: 058
  2. AXEPIM [Suspect]
     Active Substance: CEFEPIME HYDROCHLORIDE
     Indication: DEVICE RELATED INFECTION
     Dosage: 3 GRAM, QD
     Route: 041
     Dates: start: 20190823, end: 20190909
  3. VANCOMICINA MYLAN [Suspect]
     Active Substance: VANCOMYCIN
     Indication: DEVICE RELATED INFECTION
     Dosage: POSOLOGIE VARIABLE SELON LES JOURS
     Route: 041
     Dates: start: 20190823, end: 20190909

REACTIONS (2)
  - Acute kidney injury [Not Recovered/Not Resolved]
  - Antibiotic level above therapeutic [Recovered/Resolved]

NARRATIVE: CASE EVENT DATE: 20190909
